FAERS Safety Report 6299841-8 (Version None)
Quarter: 2009Q3

REPORT INFORMATION
  Report Type: 
  Country: None (occurrence: None)
  Receive Date: 20090806
  Receipt Date: 20090727
  Transmission Date: 20100115
  Serious: Yes (Hospitalization)
  Sender: FDA-Public Use
  Company Number: SG-ABBOTT-09P-141-0588050-01

PATIENT
  Sex: Male
  Weight: 59.5 kg

DRUGS (9)
  1. RITONAVIR SOFT GELATIN CAPSULES [Suspect]
     Indication: HIV INFECTION
  2. TMC114 [Concomitant]
     Indication: HIV INFECTION
     Route: 048
     Dates: start: 20060408, end: 20070430
  3. TRUVADA [Concomitant]
     Indication: HIV INFECTION
     Route: 048
     Dates: start: 20060408
  4. TRUVADA [Concomitant]
     Route: 048
     Dates: start: 20090510
  5. PARACETAMOL [Concomitant]
     Indication: COUGH
     Route: 048
     Dates: start: 20070417
  6. PARACETAMOL [Concomitant]
     Route: 048
     Dates: start: 20070425
  7. DHASEDYL [Concomitant]
     Indication: COUGH
     Route: 048
     Dates: start: 20070417
  8. LORATADINE [Concomitant]
     Indication: COUGH
     Route: 048
     Dates: start: 20070417
  9. AMOXICILLIN [Concomitant]
     Indication: COUGH
     Route: 048
     Dates: start: 20070417

REACTIONS (1)
  - PERICARDIAL EFFUSION [None]
